FAERS Safety Report 18436401 (Version 1)
Quarter: 2020Q4

REPORT INFORMATION
  Report Type: Spontaneous
  Country: IT (occurrence: IT)
  Receive Date: 20201028
  Receipt Date: 20201028
  Transmission Date: 20210114
  Serious: Yes (Death, Other)
  Sender: FDA-Public Use
  Company Number: IT-GLAXOSMITHKLINE-IT2020213314

PATIENT
  Sex: Male
  Weight: 3 kg

DRUGS (1)
  1. LAMICTAL [Suspect]
     Active Substance: LAMOTRIGINE
     Indication: EPILEPSY
     Dosage: 300 MG, QD
     Route: 048

REACTIONS (2)
  - Neonatal multi-organ failure [Fatal]
  - Disseminated intravascular coagulation in newborn [Fatal]

NARRATIVE: CASE EVENT DATE: 20201009
